FAERS Safety Report 24445878 (Version 1)
Quarter: 2024Q4

REPORT INFORMATION
  Report Type: Spontaneous
  Country: US (occurrence: US)
  Receive Date: 20241016
  Receipt Date: 20241016
  Transmission Date: 20250114
  Serious: No
  Sender: BAYER HEALTHCARE LLC
  Company Number: US-BAYER-2024A144136

PATIENT
  Age: 93 Year
  Sex: Female

DRUGS (3)
  1. MIRALAX [Suspect]
     Active Substance: POLYETHYLENE GLYCOL 3350
     Indication: Intestinal obstruction
     Dosage: 1 FULL PACKET FOR THE TIME 4 TABLESPOON EVERY 6 HOURS FOR THE SECOND TIME
     Route: 048
     Dates: start: 20241006, end: 20241008
  2. STOOL SOFTENER (DOCUSATE) [Concomitant]
     Active Substance: DOCUSATE
     Route: 048
  3. Dulcolax [Concomitant]
     Dosage: UNK

REACTIONS (7)
  - Off label use [None]
  - Inappropriate schedule of product administration [None]
  - Gastrointestinal pain [Recovered/Resolved]
  - Diarrhoea [Recovered/Resolved]
  - Flatulence [Recovered/Resolved]
  - Wrong technique in product usage process [None]
  - Dehydration [None]

NARRATIVE: CASE EVENT DATE: 20241006
